FAERS Safety Report 5584292-1 (Version None)
Quarter: 2008Q1

REPORT INFORMATION
  Report Type: 
  Country: None (occurrence: None)
  Receive Date: 20080108
  Receipt Date: 20080107
  Transmission Date: 20080703
  Serious: Yes (Other)
  Sender: FDA-Public Use
  Company Number: B0501762A

PATIENT
  Age: 78 Year
  Sex: Female

DRUGS (7)
  1. PAXIL [Suspect]
     Indication: DEPRESSION
     Dosage: 20MG PER DAY
     Route: 048
     Dates: start: 20010305, end: 20071217
  2. BEPRICOR [Suspect]
     Indication: DRUG USE FOR UNKNOWN INDICATION
     Dosage: 200MG PER DAY
     Route: 048
  3. DEPAS [Concomitant]
     Dosage: .5MG PER DAY
     Route: 048
  4. THYRADIN [Concomitant]
     Dosage: 1MCG PER DAY
     Route: 048
  5. RIZE [Concomitant]
     Dosage: 15MG PER DAY
     Route: 048
  6. WARFARIN SODIUM [Concomitant]
     Dosage: 3MG PER DAY
     Route: 048
  7. WARFARIN SODIUM [Concomitant]
     Dosage: .5MG PER DAY
     Route: 048

REACTIONS (2)
  - DRUG INTERACTION [None]
  - ELECTROCARDIOGRAM QT PROLONGED [None]
